FAERS Safety Report 8942324 (Version 2)
Quarter: 2013Q1

REPORT INFORMATION
  Report Type: Spontaneous
  Country: US (occurrence: None)
  Receive Date: 20121123
  Receipt Date: 20121219
  Transmission Date: 20140127
  Serious: Yes (Hospitalization, Other)
  Sender: FDA-Public Use
  Company Number: 2012EXPUS00056

PATIENT
  Age: 48 Year
  Sex: Male

DRUGS (2)
  1. EXPAREL [Suspect]
     Indication: POSTOPERATIVE ANALGESIA
     Route: 058
     Dates: start: 20121109, end: 20121109
  2. ZOFRAN (ONDANSETRON HYDROCHLORIDE) [Concomitant]

REACTIONS (9)
  - Injection site extravasation [None]
  - Hypoaesthesia [None]
  - Paraesthesia [None]
  - Diplegia [None]
  - Weight bearing difficulty [None]
  - Hypotonia [None]
  - Impaired healing [None]
  - Peroneal nerve palsy [None]
  - Muscular weakness [None]
